FAERS Safety Report 13214001 (Version 4)
Quarter: 2017Q1

REPORT INFORMATION
  Report Type: Report from Study
  Country: None (occurrence: US)
  Receive Date: 20170210
  Receipt Date: 20170328
  Transmission Date: 20170428
  Serious: Yes (Death)
  Sender: FDA-Public Use
  Company Number: US-ABBVIE-17K-163-1869846-00

PATIENT
  Age: 70 Year
  Sex: Male

DRUGS (5)
  1. PRILOSEC [Concomitant]
     Active Substance: OMEPRAZOLE MAGNESIUM
     Indication: GASTROOESOPHAGEAL REFLUX DISEASE
  2. METOPROLOL. [Concomitant]
     Active Substance: METOPROLOL
     Indication: HYPERTENSION
  3. HUMIRA [Suspect]
     Active Substance: ADALIMUMAB
     Indication: PSORIATIC ARTHROPATHY
     Route: 058
     Dates: start: 2014, end: 201608
  4. ELIQUIS [Concomitant]
     Active Substance: APIXABAN
     Indication: CORONARY ARTERY DISEASE
  5. ASPIRIN. [Concomitant]
     Active Substance: ASPIRIN
     Indication: CORONARY ARTERY DISEASE

REACTIONS (1)
  - Adenocarcinoma [Fatal]

NARRATIVE: CASE EVENT DATE: 201606
